FAERS Safety Report 8228086-7 (Version None)
Quarter: 2012Q1

REPORT INFORMATION
  Report Type: 
  Country: None (occurrence: None)
  Receive Date: 20120322
  Receipt Date: 20120316
  Transmission Date: 20120608
  Serious: Yes (Death)
  Sender: FDA-Public Use
  Company Number: JP-SANOFI-AVENTIS-2012SA010722

PATIENT
  Age: 55 Year
  Sex: Male
  Weight: 58.3 kg

DRUGS (8)
  1. TAXOTERE [Suspect]
     Indication: GASTRIC CANCER STAGE IV
     Dosage: 40-50MG 1 TIMETWO WEEKS
     Route: 041
     Dates: start: 20111129, end: 20120110
  2. CISPLATIN [Suspect]
     Indication: GASTRIC CANCER STAGE IV
     Dosage: FREQUENCY: 1 TIME/ 5 WEEKS
     Route: 041
     Dates: start: 20110831, end: 20111129
  3. TS-1 [Suspect]
     Dosage: ROUTE: INTERNAL
     Dates: start: 20111227, end: 20120109
  4. CISPLATIN [Suspect]
     Indication: GASTRIC CANCER STAGE IV
     Dosage: DOSE AND FREQUENCY: 20-50MG TIMES FOR 1 WEEK
     Route: 041
     Dates: start: 20111129, end: 20120110
  5. TS-1 [Suspect]
     Indication: GASTRIC CANCER STAGE IV
     Dosage: ROUTE: INTERNALFREQUENCY: 60 MGX2 TIMES
     Dates: start: 20111129, end: 20111212
  6. PACLITAXEL [Suspect]
     Indication: GASTRIC CANCER STAGE IV
     Route: 041
     Dates: start: 20110419, end: 20110607
  7. CITRIC ACID AND SODIUM CITRATE AND SODIUM PHOSPHATE MONOBASIC (ANHYDRA [Concomitant]
     Dates: start: 20120112
  8. CITRIC ACID AND SODIUM CITRATE AND SODIUM PHOSPHATE MONOBASIC (ANHYDRA [Concomitant]
     Dates: start: 20120121, end: 20120122

REACTIONS (11)
  - THROMBOCYTOPENIA [None]
  - BONE MARROW DISORDER [None]
  - GASTRIC CANCER STAGE IV [None]
  - MALIGNANT PERITONEAL NEOPLASM [None]
  - OEDEMA [None]
  - HAEMATOTOXICITY [None]
  - ANAEMIA [None]
  - TOXICITY TO VARIOUS AGENTS [None]
  - MALIGNANT ASCITES [None]
  - NEOPLASM PROGRESSION [None]
  - NEUTROPENIA [None]
